FAERS Safety Report 9015175 (Version 1)
Quarter: 2013Q1

REPORT INFORMATION
  Report Type: Spontaneous
  Country: US (occurrence: None)
  Receive Date: 20130103
  Receipt Date: 20130103
  Transmission Date: 20140127
  Serious: Yes (Hospitalization)
  Sender: FDA-Public Use
  Company Number: 2012AL000103

PATIENT
  Age: 65 Year
  Sex: Male
  Weight: 59.2 kg

DRUGS (11)
  1. FOLOYTN (PRALATREXATE) [Suspect]
     Indication: ADENOCARCINOMA GASTRIC
     Route: 042
     Dates: start: 20121114, end: 20121205
  2. OXALIPLATIN (OXALIPLATIN) [Suspect]
     Indication: ADENOCARCINOMA GASTRIC
     Route: 042
     Dates: start: 20121114, end: 20121205
  3. FOLIC ACID [Concomitant]
  4. FOLINIC ACID [Concomitant]
  5. DEXAMETHASONE [Concomitant]
  6. OXYCODONE [Concomitant]
  7. COBALAMIN [Concomitant]
  8. LOPERAMIDE [Concomitant]
  9. ONDANSETRON [Concomitant]
  10. POTASSIUM CHLORIDE [Concomitant]
  11. ACETAMINOPHEN [Concomitant]

REACTIONS (3)
  - Dehydration [None]
  - Blood urea increased [None]
  - Blood albumin decreased [None]
